FAERS Safety Report 6788285-8 (Version None)
Quarter: 2010Q2

REPORT INFORMATION
  Report Type: 
  Country: None (occurrence: None)
  Receive Date: 20100623
  Receipt Date: 20080214
  Transmission Date: 20101027
  Serious: No
  Sender: FDA-Public Use
  Company Number: US-PFIZER INC-2008015213

PATIENT
  Sex: Female
  Weight: 80.909 kg

DRUGS (3)
  1. AROMASIN [Suspect]
     Indication: POSTMENOPAUSE
     Dates: start: 20080101, end: 20080210
  2. AROMASIN [Suspect]
     Indication: BREAST CANCER
  3. OPHTHALMOLOGICALS [Concomitant]

REACTIONS (1)
  - HYPOGLYCAEMIA [None]
